FAERS Safety Report 10568331 (Version 1)
Quarter: 2014Q4

REPORT INFORMATION
  Report Type: Spontaneous
  Country: US (occurrence: US)
  Receive Date: 20141106
  Receipt Date: 20141106
  Transmission Date: 20150529
  Serious: Yes (Other)
  Sender: FDA-Public Use
  Company Number: US-JNJFOC-20141101436

PATIENT
  Sex: Female
  Weight: 66.68 kg

DRUGS (2)
  1. NUCYNTA [Suspect]
     Active Substance: TAPENTADOL HYDROCHLORIDE
     Indication: PAIN
     Route: 048
     Dates: start: 201404
  2. LINZESS [Concomitant]
     Active Substance: LINACLOTIDE
     Indication: IRRITABLE BOWEL SYNDROME
     Route: 048

REACTIONS (4)
  - Drug effect decreased [Unknown]
  - Dehydration [Unknown]
  - Pain [Unknown]
  - Ehlers-Danlos syndrome [Not Recovered/Not Resolved]

NARRATIVE: CASE EVENT DATE: 2014
